FAERS Safety Report 9416199 (Version 1)
Quarter: 2013Q3

REPORT INFORMATION
  Report Type: Spontaneous
  Country: US (occurrence: None)
  Receive Date: 20130723
  Receipt Date: 20130723
  Transmission Date: 20140515
  Serious: Yes (Hospitalization)
  Sender: FDA-Public Use
  Company Number: None

PATIENT
  Age: 61 Year
  Sex: 0

DRUGS (1)
  1. BRENTUXIMAB VEDOTIN [Suspect]
     Indication: HODGKIN^S DISEASE
     Route: 042
     Dates: start: 20130712, end: 20130712

REACTIONS (1)
  - Pancreatitis [None]
